FAERS Safety Report 17861135 (Version 1)
Quarter: 2020Q2

REPORT INFORMATION
  Report Type: Spontaneous
  Country: NL (occurrence: ES)
  Receive Date: 20200604
  Receipt Date: 20200604
  Transmission Date: 20200714
  Serious: Yes (Other)
  Sender: FDA-Public Use
  Company Number: ES-FRESENIUS KABI-FK202005449

PATIENT
  Age: 12 Year
  Sex: Female
  Weight: 38 kg

DRUGS (6)
  1. CEFEPIME (MANUFACTURER UNKNOWN) [Suspect]
     Active Substance: CEFEPIME HYDROCHLORIDE
     Indication: FEBRILE NEUTROPENIA
     Dosage: 2000MG/8H
     Route: 042
     Dates: start: 20191019, end: 20191025
  2. METHOTREXATE. [Suspect]
     Active Substance: METHOTREXATE
     Indication: ACUTE MYELOID LEUKAEMIA
     Dosage: INTRATHECAL METHOTREXATE ON THE FIRST DAY OF THE CYCLE
     Route: 037
     Dates: start: 20191023, end: 20191023
  3. CYTARABINE. [Suspect]
     Active Substance: CYTARABINE
     Indication: ACUTE MYELOID LEUKAEMIA
     Dosage: CYTARABINE 2000MG / M2 (TOTAL 5 DOSES)
     Route: 042
     Dates: start: 20191023, end: 20191026
  4. LINEZOLID (MANUFACTURER UNKNOWN) [Suspect]
     Active Substance: LINEZOLID
     Indication: FEBRILE NEUTROPENIA
     Dosage: 400MG/12H
     Route: 042
     Dates: start: 20191020, end: 20191025
  5. PARACETAMOL (MANUFACTURER UNKNOWN) [Suspect]
     Active Substance: ACETAMINOPHEN
     Indication: FEBRILE NEUTROPENIA
     Dosage: 430 MG / 8H IF NEEDED
     Route: 042
     Dates: start: 20191019, end: 20191024
  6. FLUDARABINE [Suspect]
     Active Substance: FLUDARABINE PHOSPHATE
     Indication: ACUTE MYELOID LEUKAEMIA
     Dosage: FLUDARABINE 30MG / M2 (TOTAL 5 DOSES)
     Route: 042
     Dates: start: 20191023, end: 20191026

REACTIONS (2)
  - Hepatitis [Recovered/Resolved]
  - Hyperbilirubinaemia [Recovered/Resolved]

NARRATIVE: CASE EVENT DATE: 20191031
